FAERS Safety Report 15567147 (Version 2)
Quarter: 2019Q1

REPORT INFORMATION
  Report Type: Spontaneous
  Country: US (occurrence: US)
  Receive Date: 20181030
  Receipt Date: 20190117
  Transmission Date: 20190417
  Serious: No
  Sender: FDA-Public Use
  Company Number: US-009507513-1810USA013392

PATIENT

DRUGS (3)
  1. NOXAFIL [Interacting]
     Active Substance: POSACONAZOLE
     Dosage: 300 MILLIGRAM, ONCE DAILY THERAFTER
  2. NOXAFIL [Suspect]
     Active Substance: POSACONAZOLE
     Indication: ANTIFUNGAL PROPHYLAXIS
     Dosage: 300 MILLIGRAM, TWICE A DAY ON DAY 1
     Route: 048
  3. MIDOSTAURIN [Interacting]
     Active Substance: MIDOSTAURIN
     Dosage: UNK

REACTIONS (1)
  - Drug interaction [Unknown]
